FAERS Safety Report 8861781 (Version 1)
Quarter: 2012Q4

REPORT INFORMATION
  Report Type: 
  Country: US (occurrence: US)
  Receive Date: 20121025
  Receipt Date: 20121025
  Transmission Date: 20130627
  Serious: No
  Sender: FDA-Public Use
  Company Number: US-AMGEN-USASP2012021336

PATIENT
  Sex: Female

DRUGS (9)
  1. ENBREL [Suspect]
     Indication: PRODUCT USED FOR UNKNOWN INDICATION
     Dosage: 50 mg, qwk
     Route: 058
  2. CALTRATE                           /00751519/ [Concomitant]
     Dosage: UNK
  3. METHOTREXATE [Concomitant]
     Dosage: 2.5 mg, UNK
  4. SYNTHROID [Concomitant]
     Dosage: 25 mug, UNK
  5. LOVAZA [Concomitant]
     Dosage: 1 g, UNK
  6. PRILOSEC                           /00661201/ [Concomitant]
     Dosage: 10 mg, UNK
  7. METHYLPRED [Concomitant]
     Dosage: 4 mg, UNK
  8. BIOTIN [Concomitant]
     Dosage: UNK
  9. FOLIC ACID [Concomitant]
     Dosage: UNK

REACTIONS (2)
  - Injection site pain [Unknown]
  - Injection site haemorrhage [Unknown]
